FAERS Safety Report 6512609-X (Version None)
Quarter: 2009Q4

REPORT INFORMATION
  Report Type: 
  Country: None (occurrence: None)
  Receive Date: 20091222
  Receipt Date: 20091218
  Transmission Date: 20100525
  Serious: Yes (Death)
  Sender: FDA-Public Use
  Company Number: US-GILEAD-2009-0025048

PATIENT
  Sex: Male

DRUGS (13)
  1. LETAIRIS [Suspect]
     Indication: PULMONARY ARTERIAL HYPERTENSION
     Route: 048
     Dates: start: 20090924
  2. WARFARIN SODIUM [Concomitant]
  3. FUROSEMIDE [Concomitant]
  4. ADVAIR DISKUS 100/50 [Concomitant]
  5. ALBUTEROL [Concomitant]
  6. COLCHICINE [Concomitant]
  7. DIGOXIN [Concomitant]
  8. KLOR-CON [Concomitant]
  9. ACETAMINOPHEN [Concomitant]
  10. CARBIDOPA [Concomitant]
  11. COMTAN [Concomitant]
  12. PATANOL [Concomitant]
  13. PREVACID [Concomitant]

REACTIONS (1)
  - RESPIRATORY FAILURE [None]
